FAERS Safety Report 5778207-0 (Version None)
Quarter: 2008Q2

REPORT INFORMATION
  Report Type: 
  Country: None (occurrence: None)
  Receive Date: 20080619
  Receipt Date: 20080505
  Transmission Date: 20081010
  Serious: No
  Sender: FDA-Public Use
  Company Number: US-BAYER-200822552NA

PATIENT
  Age: 50 Year
  Sex: Female

DRUGS (1)
  1. YAZ [Suspect]
     Indication: MIGRAINE
     Route: 048
     Dates: start: 20080228, end: 20080428

REACTIONS (2)
  - NO ADVERSE EVENT [None]
  - VAGINAL HAEMORRHAGE [None]
